FAERS Safety Report 10131511 (Version 2)
Quarter: 2014Q2

REPORT INFORMATION
  Report Type: Spontaneous
  Country: US (occurrence: US)
  Receive Date: 20140428
  Receipt Date: 20140428
  Transmission Date: 20141212
  Serious: Yes (Other)
  Sender: FDA-Public Use
  Company Number: US-MYLANLABS-2014S1008869

PATIENT
  Age: 94 Year
  Sex: Female
  Weight: 56.93 kg

DRUGS (1)
  1. PHENYTEK CAPSULES, USP [Suspect]
     Indication: PETIT MAL EPILEPSY
     Route: 048
     Dates: start: 20140210, end: 20140411

REACTIONS (7)
  - Drug ineffective [Recovered/Resolved]
  - Convulsion [Recovered/Resolved]
  - Anticonvulsant drug level decreased [Not Recovered/Not Resolved]
  - Malaise [Recovered/Resolved]
  - Muscle twitching [Not Recovered/Not Resolved]
  - Decreased appetite [Not Recovered/Not Resolved]
  - Hypersomnia [Not Recovered/Not Resolved]
